FAERS Safety Report 4790471-3 (Version None)
Quarter: 2005Q4

REPORT INFORMATION
  Report Type: 
  Country: None (occurrence: None)
  Receive Date: 20051005
  Receipt Date: 20050920
  Transmission Date: 20060501
  Serious: Yes (Death)
  Sender: FDA-Public Use
  Company Number: USA0508105936

PATIENT
  Sex: Male

DRUGS (2)
  1. ZYPREXA [Suspect]
  2. PHENTERMINE [Concomitant]

REACTIONS (2)
  - ARRHYTHMIA [None]
  - OVERDOSE [None]
